FAERS Safety Report 10585823 (Version 4)
Quarter: 2014Q4

REPORT INFORMATION
  Report Type: Spontaneous
  Country: IL (occurrence: IL)
  Receive Date: 20141114
  Receipt Date: 20141204
  Transmission Date: 20150529
  Serious: Yes (Hospitalization, Other)
  Sender: FDA-Public Use
  Company Number: IL-009507513-1410ISR012502

PATIENT
  Age: 56 Year
  Sex: Female
  Weight: 68 kg

DRUGS (8)
  1. SYNTHROID [Concomitant]
     Active Substance: LEVOTHYROXINE SODIUM
     Indication: THYROID DISORDER
     Dosage: 100 MG, QAM
  2. CARTIA (ASPIRIN) [Concomitant]
     Active Substance: ASPIRIN
     Dosage: 100 MG, QD
  3. LOSEC (OMEPRAZOLE) [Concomitant]
     Dosage: UNK
  4. TRITACE [Concomitant]
     Active Substance: RAMIPRIL
     Dosage: 5 MG, QD
  5. DERALIN [Concomitant]
     Active Substance: PROPRANOLOL HYDROCHLORIDE
     Dosage: 80 MG, QD
  6. EZETROL 10MG TABLETS [Suspect]
     Active Substance: EZETIMIBE
     Dosage: TAKEN IN THE EVENING
     Route: 048
     Dates: start: 20141006
  7. LIPITOR [Suspect]
     Active Substance: ATORVASTATIN CALCIUM
     Dosage: 20 MG, QD
     Route: 048
     Dates: start: 20141021
  8. MOXYPEN [Concomitant]

REACTIONS (13)
  - Hypertension [Recovered/Resolved]
  - Amnesia [Not Recovered/Not Resolved]
  - Concussion [Unknown]
  - Disturbance in attention [Unknown]
  - Head discomfort [Unknown]
  - Fall [Unknown]
  - Low density lipoprotein decreased [Unknown]
  - Speech disorder [Unknown]
  - Inappropriate schedule of drug administration [Unknown]
  - Vision blurred [Unknown]
  - C-reactive protein increased [Unknown]
  - Loss of consciousness [Unknown]
  - Dizziness [Recovered/Resolved]

NARRATIVE: CASE EVENT DATE: 20141022
